FAERS Safety Report 10625896 (Version 2)
Quarter: 2015Q3

REPORT INFORMATION
  Report Type: Report from Study
  Country: DE (occurrence: DE)
  Receive Date: 20141204
  Receipt Date: 20150928
  Transmission Date: 20151125
  Serious: Yes (Hospitalization)
  Sender: FDA-Public Use
  Company Number: DE-CELGENE-DEU-2014114793

PATIENT
  Age: 66 Year
  Weight: 78 kg

DRUGS (1)
  1. ABRAXANE [Suspect]
     Active Substance: PACLITAXEL
     Indication: BREAST CANCER METASTATIC
     Route: 041
     Dates: start: 20141009

REACTIONS (1)
  - Paraparesis [Recovered/Resolved with Sequelae]

NARRATIVE: CASE EVENT DATE: 20141119
